FAERS Safety Report 6887780-0 (Version None)
Quarter: 2010Q3

REPORT INFORMATION
  Report Type: 
  Country: None (occurrence: None)
  Receive Date: 20100730
  Receipt Date: 20100720
  Transmission Date: 20110219
  Serious: Yes (Other)
  Sender: FDA-Public Use
  Company Number: DE-PFIZER INC-2010053475

PATIENT
  Age: 54 Year
  Sex: Male

DRUGS (7)
  1. LYRICA [Suspect]
     Indication: ANXIETY DISORDER
     Dosage: 75 MG DAILY
  2. LYRICA [Suspect]
     Indication: SLEEP DISORDER
     Dosage: 75 MG, 3X/DAY
     Route: 048
  3. LYRICA [Suspect]
     Indication: PANIC DISORDER
     Dosage: SLOWLY TITRATED UP TO 300MG
     Route: 048
  4. LORAZEPAM [Concomitant]
     Indication: SLEEP DISORDER
     Dosage: 2.5 MG AT NIGHT, AS NEEDED
  5. LORAZEPAM [Concomitant]
     Indication: ANXIETY DISORDER
     Dosage: 1.25 MG, 1X/DAY (HALF OF 2.5 MG)
     Route: 048
  6. ATOSIL [Concomitant]
  7. FLUOXETINE [Concomitant]
     Dosage: 20 MG, 1X/DAY
     Route: 048

REACTIONS (16)
  - ABDOMINAL DISTENSION [None]
  - CHILLS [None]
  - CONSTIPATION [None]
  - DRUG INEFFECTIVE [None]
  - FEELING DRUNK [None]
  - GAIT DISTURBANCE [None]
  - INDIFFERENCE [None]
  - LETHARGY [None]
  - LOSS OF LIBIDO [None]
  - PARAESTHESIA [None]
  - PERIPHERAL COLDNESS [None]
  - POOR PERIPHERAL CIRCULATION [None]
  - SOMNOLENCE [None]
  - VERTIGO [None]
  - VISUAL IMPAIRMENT [None]
  - WEIGHT INCREASED [None]
